FAERS Safety Report 12571144 (Version 1)
Quarter: 2016Q3

REPORT INFORMATION
  Report Type: Spontaneous
  Country: US (occurrence: US)
  Receive Date: 20160719
  Receipt Date: 20160719
  Transmission Date: 20161109
  Serious: Yes (Other)
  Sender: FDA-Public Use
  Company Number: US-CELGENEUS-USA-2016073480

PATIENT
  Sex: Male
  Weight: 76.27 kg

DRUGS (2)
  1. REVLIMID [Suspect]
     Active Substance: LENALIDOMIDE
     Route: 048
     Dates: start: 201606
  2. REVLIMID [Suspect]
     Active Substance: LENALIDOMIDE
     Indication: PLASMA CELL MYELOMA
     Route: 048
     Dates: start: 20160509

REACTIONS (8)
  - Disturbance in attention [Unknown]
  - Ageusia [Unknown]
  - Dizziness [Unknown]
  - Blood pressure decreased [Unknown]
  - Weight decreased [Unknown]
  - Insomnia [Unknown]
  - Cardiac failure congestive [Unknown]
  - Cataract [Unknown]
